FAERS Safety Report 8448222-7 (Version None)
Quarter: 2012Q2

REPORT INFORMATION
  Report Type: 
  Country: None (occurrence: None)
  Receive Date: 20120619
  Receipt Date: 20120614
  Transmission Date: 20120825
  Serious: Yes (Hospitalization, Other)
  Sender: FDA-Public Use
  Company Number: ES-BAYER-2012-047100

PATIENT
  Age: 33 Year
  Sex: Female
  Weight: 48 kg

DRUGS (7)
  1. NEXAVAR [Suspect]
     Dosage: 600 MG DAILY
     Dates: start: 20120404, end: 20120429
  2. LOPERAMIDE [Concomitant]
     Indication: DIARRHOEA
     Dosage: UNK
     Route: 048
     Dates: start: 20120101
  3. DROSPIRENONE AND ETHINYL ESTRADIOL [Concomitant]
     Indication: METRORRHAGIA
     Dosage: UNK
     Route: 048
  4. LEVOTHYROXINE SODIUM [Concomitant]
     Indication: THYROID OPERATION
     Dosage: UNK
     Route: 048
     Dates: start: 19980101
  5. NEXAVAR [Suspect]
     Indication: THYROID CANCER METASTATIC
     Dosage: 400 MG, BID
     Route: 048
     Dates: start: 20110801, end: 20120125
  6. RANITIDINE HCL [Concomitant]
     Indication: HYPERCHLORHYDRIA
     Dosage: DAILY DOSE 150 MG
     Dates: start: 20120101
  7. NEXAVAR [Suspect]
     Dosage: 400 MG, BID
     Route: 048
     Dates: start: 20120201, end: 20120404

REACTIONS (9)
  - LARGE INTESTINAL ULCER HAEMORRHAGE [None]
  - ABDOMINAL PAIN [None]
  - ANAEMIA [None]
  - ASTHENIA [None]
  - DECREASED APPETITE [None]
  - DIARRHOEA [None]
  - WEIGHT DECREASED [None]
  - RECTAL HAEMORRHAGE [None]
  - MALAISE [None]
